FAERS Safety Report 5707585-3 (Version None)
Quarter: 2008Q2

REPORT INFORMATION
  Report Type: 
  Country: None (occurrence: None)
  Receive Date: 20080411
  Receipt Date: 20070209
  Transmission Date: 20081010
  Serious: Yes (Other)
  Sender: FDA-Public Use
  Company Number: 8021883

PATIENT
  Age: 17 Year
  Sex: Male

DRUGS (5)
  1. METHYLPHENIDATE HCL [Suspect]
     Indication: ATTENTION DEFICIT/HYPERACTIVITY DISORDER
     Dosage: 20 MG 2/D PO
     Route: 048
     Dates: start: 20061120
  2. METHYLPHENIDATE HCL [Suspect]
     Indication: ATTENTION DEFICIT/HYPERACTIVITY DISORDER
     Dosage: 20 MG 2/D PO
     Route: 048
     Dates: start: 20070131
  3. WELLBUTRIN [Concomitant]
  4. BENZOYL PEROXIDE [Concomitant]
  5. AMOXICILLIN [Concomitant]

REACTIONS (1)
  - DRUG EFFECT DECREASED [None]
